FAERS Safety Report 14251207 (Version 1)
Quarter: 2017Q4

REPORT INFORMATION
  Report Type: Spontaneous
  Country: US (occurrence: US)
  Receive Date: 20171205
  Receipt Date: 20171205
  Transmission Date: 20180321
  Serious: No
  Sender: FDA-Public Use
  Company Number: PHEH2017US037966

PATIENT
  Sex: Female
  Weight: 150 kg

DRUGS (1)
  1. SPIRONOLACTONE TABLETS USP [Suspect]
     Active Substance: SPIRONOLACTONE
     Indication: ASCITES
     Dosage: UNK
     Route: 065

REACTIONS (1)
  - Pruritus [Unknown]
